FAERS Safety Report 5256410-6 (Version None)
Quarter: 2007Q1

REPORT INFORMATION
  Report Type: 
  Country: None (occurrence: None)
  Receive Date: 20070306
  Receipt Date: 20070228
  Transmission Date: 20070707
  Serious: Yes (Hospitalization, Other)
  Sender: FDA-Public Use
  Company Number: GB-JNJFOC-20070300135

PATIENT
  Sex: Female
  Weight: 54 kg

DRUGS (8)
  1. REMICADE [Suspect]
     Indication: RHEUMATOID ARTHRITIS
     Route: 042
  2. SULFASALAZINE [Concomitant]
  3. METHOTREXATE [Concomitant]
  4. CALCICHEW [Concomitant]
  5. CO-PROXAMOL [Concomitant]
  6. FOSAMAX [Concomitant]
  7. GABAPENTIN [Concomitant]
  8. LANSOPRAZOLE [Concomitant]

REACTIONS (1)
  - RECTAL PROLAPSE [None]
